FAERS Safety Report 9529975 (Version 2)
Quarter: 2013Q3

REPORT INFORMATION
  Report Type: Spontaneous
  Country: DK (occurrence: FR)
  Receive Date: 20130917
  Receipt Date: 20130927
  Transmission Date: 20140515
  Serious: Yes (Hospitalization)
  Sender: FDA-Public Use
  Company Number: FR-FRI-1000048787

PATIENT
  Age: 75 Year
  Sex: Female

DRUGS (8)
  1. CITALOPRAM [Suspect]
     Indication: DEPRESSION
     Dosage: 1 DF
     Route: 048
     Dates: start: 20130513, end: 20130519
  2. LAROXYL [Suspect]
     Dosage: 10 MG
     Route: 048
     Dates: start: 20130506, end: 20130520
  3. XANAX [Concomitant]
     Dosage: 1 DF
     Route: 048
     Dates: end: 20130522
  4. IMOVANE [Concomitant]
     Route: 048
     Dates: end: 20130522
  5. PREVISCAN [Concomitant]
     Dosage: 1 DF
     Route: 048
  6. AVLOCARDYL [Concomitant]
     Dosage: 1 DF
     Route: 048
  7. ATACAND [Concomitant]
     Dosage: 1 DF
     Route: 048
  8. DAFALGAN CODEINE [Concomitant]
     Dosage: 3 DF

REACTIONS (2)
  - Altered state of consciousness [Recovered/Resolved]
  - Hyponatraemia [Recovered/Resolved]
